FAERS Safety Report 10070236 (Version 2)
Quarter: 2014Q3

REPORT INFORMATION
  Report Type: Spontaneous
  Country: IT (occurrence: None)
  Receive Date: 20140408
  Receipt Date: 20140701
  Transmission Date: 20150326
  Serious: Yes (Hospitalization)
  Sender: FDA-Public Use
  Company Number: SYM-2014-19576

PATIENT
  Age: 66 Year
  Sex: Male

DRUGS (3)
  1. XENAZINE [Suspect]
     Active Substance: TETRABENAZINE
     Indication: TARDIVE DYSKINESIA
     Route: 048
     Dates: start: 20130724, end: 201309
  2. ZYPREXA [Concomitant]
     Active Substance: OLANZAPINE
  3. TOLEP [Concomitant]
     Active Substance: OXCARBAZEPINE

REACTIONS (4)
  - Family stress [None]
  - Disinhibition [None]
  - Verbal abuse [None]
  - Aggression [None]

NARRATIVE: CASE EVENT DATE: 20140310
